FAERS Safety Report 6504459-5 (Version None)
Quarter: 2009Q4

REPORT INFORMATION
  Report Type: 
  Country: None (occurrence: None)
  Receive Date: 20091215
  Receipt Date: 20091207
  Transmission Date: 20100525
  Serious: Yes (Hospitalization)
  Sender: FDA-Public Use
  Company Number: 2009029616

PATIENT
  Age: 85 Year
  Sex: Female

DRUGS (7)
  1. AMRIX [Suspect]
     Indication: NECK PAIN
     Dosage: ORAL
     Route: 048
     Dates: start: 20091130, end: 20091130
  2. COUMADIN [Concomitant]
  3. GABAPENTIN [Concomitant]
  4. LOTREL [Concomitant]
  5. DIOVAN [Concomitant]
  6. HYDROCHLOROTHIAZIDE [Concomitant]
  7. LANTUS [Concomitant]

REACTIONS (3)
  - BALANCE DISORDER [None]
  - GAIT DISTURBANCE [None]
  - SWOLLEN TONGUE [None]
